FAERS Safety Report 6153705-9 (Version None)
Quarter: 2009Q2

REPORT INFORMATION
  Report Type: 
  Country: None (occurrence: None)
  Receive Date: 20090410
  Receipt Date: 20090402
  Transmission Date: 20091009
  Serious: Yes (Other)
  Sender: FDA-Public Use
  Company Number: CHPA2009US06420

PATIENT
  Age: 55 Year
  Sex: Female

DRUGS (2)
  1. BENEFIBER W/WHEAT DEXTRIN (NCH) (WHEAT DEXTRIN) POWDER [Suspect]
     Indication: MEDICAL DIET
     Dosage: 9 TO 15 TSP, PER DAY ORAL
     Route: 048
     Dates: start: 20090201
  2. ALL OTHER THERAPEUTIC PRODUCTS (NO INGREDIENTS/SUBSTANCES) [Concomitant]

REACTIONS (11)
  - BOWEL MOVEMENT IRREGULARITY [None]
  - BURNING SENSATION [None]
  - CONSTIPATION [None]
  - DISEASE RECURRENCE [None]
  - DIVERTICULITIS [None]
  - DRUG INEFFECTIVE [None]
  - HAEMORRHOIDS [None]
  - INTESTINAL POLYP [None]
  - INTESTINAL POLYPECTOMY [None]
  - OVERDOSE [None]
  - PAIN [None]
